FAERS Safety Report 9843847 (Version 1)
Quarter: 2014Q1

REPORT INFORMATION
  Report Type: Spontaneous
  Country: US (occurrence: US)
  Receive Date: 20140126
  Receipt Date: 20140126
  Transmission Date: 20141002
  Serious: No
  Sender: FDA-Public Use
  Company Number: US-009507513-1401USA008039

PATIENT
  Age: 21 Year
  Sex: Female
  Weight: 78.91 kg

DRUGS (1)
  1. NEXPLANON [Suspect]
     Indication: CONTRACEPTION
     Dosage: INSERT LEFT ARM
     Dates: start: 20131015

REACTIONS (2)
  - Pain in extremity [Unknown]
  - Menstruation normal [Unknown]
